FAERS Safety Report 19079372 (Version 2)
Quarter: 2021Q2

REPORT INFORMATION
  Report Type: Spontaneous
  Country: GB (occurrence: GB)
  Receive Date: 20210331
  Receipt Date: 20210512
  Transmission Date: 20210717
  Serious: Yes (Other)
  Sender: FDA-Public Use
  Company Number: GB-MYLANLABS-2021M1018725

PATIENT
  Age: 37 Year
  Sex: Female

DRUGS (2)
  1. PRIADEL                            /00033702/ [Concomitant]
     Active Substance: LITHIUM CARBONATE
     Dosage: 600 MILLIGRAM, PM
  2. CLOZARIL [Suspect]
     Active Substance: CLOZAPINE
     Indication: SCHIZOPHRENIA
     Dosage: 175 MILLIGRAM, QD
     Route: 048
     Dates: start: 20201123

REACTIONS (1)
  - Ear neoplasm [Recovering/Resolving]

NARRATIVE: CASE EVENT DATE: 20210319
